FAERS Safety Report 11038494 (Version 3)
Quarter: 2015Q2

REPORT INFORMATION
  Report Type: Spontaneous
  Country: RU (occurrence: RU)
  Receive Date: 20150416
  Receipt Date: 20150430
  Transmission Date: 20150821
  Serious: Yes (Life-Threatening)
  Sender: FDA-Public Use
  Company Number: RU-ASTRAZENECA-2015SE34907

PATIENT
  Age: 64 Year
  Sex: Male

DRUGS (3)
  1. BRILINTA [Suspect]
     Active Substance: TICAGRELOR
     Indication: CAROTID ARTERY STENOSIS
     Route: 048
     Dates: start: 201503, end: 201503
  2. BRILINTA [Suspect]
     Active Substance: TICAGRELOR
     Indication: TRANSIENT ISCHAEMIC ATTACK
     Route: 048
     Dates: start: 201503, end: 201503
  3. HEPARIN [Concomitant]
     Active Substance: HEPARIN SODIUM

REACTIONS (2)
  - Product use issue [Recovered/Resolved]
  - Haemorrhagic stroke [Recovering/Resolving]

NARRATIVE: CASE EVENT DATE: 201503
